FAERS Safety Report 7897965-2 (Version None)
Quarter: 2011Q4

REPORT INFORMATION
  Report Type: 
  Country: None (occurrence: None)
  Receive Date: 20111107
  Receipt Date: 20111028
  Transmission Date: 20120403
  Serious: Yes (Other)
  Sender: FDA-Public Use
  Company Number: GB-PFIZER INC-K201101222

PATIENT
  Age: 61 Year
  Sex: Female

DRUGS (12)
  1. SOTALOL [Concomitant]
     Dosage: UNK
  2. ALTACE [Suspect]
     Indication: HYPERTENSION
     Dosage: 0.75 MG, 1X/DAY
     Route: 048
     Dates: start: 20101118
  3. DILTIAZEM HCL [Suspect]
     Dosage: 200 MG, 1X/DAY
     Route: 048
     Dates: start: 20101006, end: 20101104
  4. LOSARTAN [Concomitant]
     Dosage: UNK
  5. INDAPAMIDE [Concomitant]
     Dosage: UNK
     Dates: start: 20101001
  6. MEBEVERINE [Concomitant]
     Dosage: UNK
  7. SIMVASTATIN [Concomitant]
     Dosage: UNK
     Dates: start: 20100913
  8. CHAPARRAL DANDELION BLEND [Concomitant]
     Dosage: UNK
  9. ALTACE [Suspect]
     Dosage: 2.5 MG, 1X/DAY
     Dates: start: 20101206, end: 20101216
  10. BISOPROLOL FUMARATE [Suspect]
     Dosage: UNK
     Route: 065
     Dates: start: 20101001, end: 20101006
  11. BENDROFLUMETHIAZIDE [Concomitant]
     Dosage: UNK
     Dates: start: 20110113
  12. ASPIRIN [Concomitant]
     Dosage: UNK
     Dates: start: 20101202

REACTIONS (4)
  - BLOOD PRESSURE INCREASED [None]
  - VISUAL IMPAIRMENT [None]
  - DRUG HYPERSENSITIVITY [None]
  - VISION BLURRED [None]
